FAERS Safety Report 18387172 (Version 1)
Quarter: 2020Q4

REPORT INFORMATION
  Report Type: Spontaneous
  Country: US (occurrence: US)
  Receive Date: 20201014
  Receipt Date: 20201014
  Transmission Date: 20210114
  Serious: Yes (Hospitalization)
  Sender: FDA-Public Use
  Company Number: None

PATIENT
  Age: 62 Year
  Sex: Male
  Weight: 119.3 kg

DRUGS (3)
  1. CD19/20 CAR T - 55/9X10^6 CELLS [Suspect]
     Active Substance: GENETICALLY-MODIFIED AUTOLOGOUS T CELLS NOS
     Indication: LYMPHOMA
     Route: 042
     Dates: start: 20200825, end: 20200825
  2. CYCLOPHOSPHAMIDE. [Concomitant]
     Active Substance: CYCLOPHOSPHAMIDE
  3. FLUDARABINE [Concomitant]
     Active Substance: FLUDARABINE PHOSPHATE

REACTIONS (3)
  - Fatigue [None]
  - Cytokine release syndrome [None]
  - Headache [None]

NARRATIVE: CASE EVENT DATE: 20200902
